FAERS Safety Report 6337360-0 (Version None)
Quarter: 2009Q3

REPORT INFORMATION
  Report Type: 
  Country: None (occurrence: None)
  Receive Date: 20090902
  Receipt Date: 20090831
  Transmission Date: 20100115
  Serious: Yes (Hospitalization)
  Sender: FDA-Public Use
  Company Number: DE-WYE-G04335609

PATIENT
  Sex: Female

DRUGS (2)
  1. TAVOR [Suspect]
     Dosage: 49 TABLETS (OVERDOSE AMOUNT 49 MG) ON 30-AUG-2009; DAILY DOSE UNKNOWN
     Route: 048
  2. VENLAFAXINE HCL [Suspect]
     Dosage: UNKNOWN OVERDOSE AMOUNT ON 30-AUG-2009; DAILY DOSE UNKNOWN
     Route: 048

REACTIONS (5)
  - FATIGUE [None]
  - INTENTIONAL OVERDOSE [None]
  - RESPIRATORY DEPRESSION [None]
  - SOMNOLENCE [None]
  - SUICIDE ATTEMPT [None]
